FAERS Safety Report 4453036-9 (Version None)
Quarter: 2004Q3

REPORT INFORMATION
  Report Type: 
  Country: None (occurrence: None)
  Receive Date: 20040916
  Receipt Date: 20040916
  Transmission Date: 20050211
  Serious: Yes (Disabling)
  Sender: FDA-Public Use
  Company Number: None

PATIENT
  Age: 62 Year
  Sex: Male
  Weight: 95.2554 kg

DRUGS (1)
  1. ZOCOR [Suspect]
     Dosage: 40 MG PER DAY ORAL
     Route: 048
     Dates: start: 20040601, end: 20040902

REACTIONS (10)
  - ACTIVITIES OF DAILY LIVING IMPAIRED [None]
  - BURNING SENSATION [None]
  - DIFFICULTY IN WALKING [None]
  - DRUG INTERACTION [None]
  - GAIT DISTURBANCE [None]
  - HYPOAESTHESIA [None]
  - INJURY [None]
  - MUSCLE DISORDER [None]
  - PLANTAR FASCIITIS [None]
  - WEIGHT DECREASED [None]
